FAERS Safety Report 9129500 (Version 1)
Quarter: 2013Q1

REPORT INFORMATION
  Report Type: Spontaneous
  Country: JM (occurrence: JM)
  Receive Date: 20130228
  Receipt Date: 20130228
  Transmission Date: 20140127
  Serious: Yes (Other)
  Sender: FDA-Public Use
  Company Number: JM-GLAXOSMITHKLINE-B0870972A

PATIENT
  Sex: 0

DRUGS (1)
  1. AVAMYS [Suspect]
     Indication: RHINITIS ALLERGIC
     Dosage: 2PUFF PER DAY
     Route: 045

REACTIONS (2)
  - Sinusitis [Recovered/Resolved]
  - Bacterial infection [Recovered/Resolved]
